FAERS Safety Report 6823072-3 (Version None)
Quarter: 2010Q3

REPORT INFORMATION
  Report Type: 
  Country: None (occurrence: None)
  Receive Date: 20100708
  Receipt Date: 20100707
  Transmission Date: 20110219
  Serious: Yes (Other)
  Sender: FDA-Public Use
  Company Number: RO-ROXANE LABORATORIES, INC.-2010-RO-00805RO

PATIENT
  Age: 69 Year
  Sex: Female

DRUGS (3)
  1. CALCIUM CARBONATE [Suspect]
     Indication: OSTEOPOROSIS
  2. VITAMIN D [Suspect]
     Indication: OSTEOPOROSIS
  3. BIPHOSPHONATES [Suspect]
     Indication: OSTEOPOROSIS

REACTIONS (1)
  - VASCULAR CALCIFICATION [None]
